FAERS Safety Report 5381293-3 (Version None)
Quarter: 2007Q3

REPORT INFORMATION
  Report Type: 
  Country: None (occurrence: None)
  Receive Date: 20070702
  Receipt Date: 20060711
  Transmission Date: 20080115
  Serious: Yes (Hospitalization)
  Sender: FDA-Public Use
  Company Number: SUS1-2006-00574

PATIENT
  Age: 16 Year
  Sex: Female

DRUGS (2)
  1. PENTASA [Suspect]
     Indication: CROHN'S DISEASE
     Dosage: 4 G DAILY, ORAL ; 2 G DAILY, ORAL
     Route: 048
     Dates: start: 20060402, end: 20060501
  2. PENTASA [Suspect]
     Indication: CROHN'S DISEASE
     Dosage: 4 G DAILY, ORAL ; 2 G DAILY, ORAL
     Route: 048
     Dates: start: 20060501, end: 20060520

REACTIONS (1)
  - RECTAL HAEMORRHAGE [None]
